FAERS Safety Report 4277816-8 (Version None)
Quarter: 2004Q1

REPORT INFORMATION
  Report Type: 
  Country: None (occurrence: None)
  Receive Date: 20040121
  Receipt Date: 20040113
  Transmission Date: 20041129
  Serious: Yes (Hospitalization, Other)
  Sender: FDA-Public Use
  Company Number: CA-JNJFOC-20040103116

PATIENT

DRUGS (2)
  1. DURAGESIC [Suspect]
     Indication: DRUG USE FOR UNKNOWN INDICATION
     Dosage: TRANSDERMAL
     Route: 062
  2. INTERMEDIATE RELEASE MORPHINE (MORPHINE) [Concomitant]

REACTIONS (2)
  - CONVULSION [None]
  - RESPIRATORY DEPRESSION [None]
